FAERS Safety Report 8480683-X (Version None)
Quarter: 2012Q3

REPORT INFORMATION
  Report Type: 
  Country: None (occurrence: None)
  Receive Date: 20120702
  Receipt Date: 20120629
  Transmission Date: 20120928
  Serious: No
  Sender: FDA-Public Use
  Company Number: US-PFIZER INC-2012157049

PATIENT
  Sex: Female
  Weight: 58.957 kg

DRUGS (4)
  1. CHANTIX [Suspect]
     Indication: SMOKING CESSATION THERAPY
     Dosage: 0.5 MG, DAILY
     Route: 048
  2. CYMBALTA [Concomitant]
     Indication: BONE DISORDER
     Dosage: 20 MG, DAILY
  3. FLEXERIL [Concomitant]
     Indication: MUSCLE RELAXANT THERAPY
     Dosage: 10 MG, DAILY
  4. CHANTIX [Suspect]
     Dosage: UNK
     Route: 048

REACTIONS (1)
  - NAUSEA [None]
